FAERS Safety Report 23397191 (Version 1)
Quarter: 2024Q1

REPORT INFORMATION
  Report Type: Spontaneous
  Country: US (occurrence: US)
  Receive Date: 20240112
  Receipt Date: 20240112
  Transmission Date: 20240410
  Serious: No
  Sender: FDA-Public Use
  Company Number: CID000000000043342

PATIENT
  Age: 60 Year
  Weight: 62.6 kg

DRUGS (4)
  1. COPAXONE [Suspect]
     Active Substance: GLATIRAMER ACETATE
     Indication: Multiple sclerosis
     Dosage: DOSAGE: 40 MG/ML
     Route: 065
     Dates: start: 201501
  2. LEVOTHYROXINE [Concomitant]
     Active Substance: LEVOTHYROXINE
     Indication: Thyroid disorder
  3. VITAMINS [Concomitant]
     Active Substance: VITAMINS
  4. CRESTOR [Concomitant]
     Active Substance: ROSUVASTATIN CALCIUM

REACTIONS (15)
  - Chest pain [Recovered/Resolved]
  - Menopause [Unknown]
  - Abdominal pain upper [Recovered/Resolved]
  - Injection site haemorrhage [Unknown]
  - Pain [Recovered/Resolved]
  - Back pain [Recovered/Resolved]
  - Defaecation urgency [Recovered/Resolved]
  - Visual field defect [Unknown]
  - Flushing [Recovered/Resolved]
  - Injection site pain [Unknown]
  - Dizziness [Recovered/Resolved]
  - Pain in extremity [Unknown]
  - Dyspnoea [Recovered/Resolved]
  - Immediate post-injection reaction [Unknown]
  - Vomiting [Recovered/Resolved]

NARRATIVE: CASE EVENT DATE: 20230101
